FAERS Safety Report 20399818 (Version 2)
Quarter: 2022Q1

REPORT INFORMATION
  Report Type: Spontaneous
  Country: US (occurrence: US)
  Receive Date: 20220131
  Receipt Date: 20220201
  Transmission Date: 20220423
  Serious: No
  Sender: FDA-Public Use
  Company Number: US-ABBVIE-21K-163-3991488-00

PATIENT
  Age: 18 Year
  Sex: Female
  Weight: 67.646 kg

DRUGS (2)
  1. HUMIRA [Suspect]
     Active Substance: ADALIMUMAB
     Indication: Hidradenitis
     Dosage: LOADING DOSE
     Route: 058
     Dates: start: 20210711, end: 20210711
  2. NAPROXEN [Concomitant]
     Active Substance: NAPROXEN
     Indication: Dysmenorrhoea
     Route: 065

REACTIONS (2)
  - Dizziness [Recovering/Resolving]
  - Dizziness [Not Recovered/Not Resolved]

NARRATIVE: CASE EVENT DATE: 20210711
